FAERS Safety Report 6414372-X (Version None)
Quarter: 2009Q4

REPORT INFORMATION
  Report Type: 
  Country: None (occurrence: None)
  Receive Date: 20091021
  Receipt Date: 20091006
  Transmission Date: 20100525
  Serious: Yes (Death)
  Sender: FDA-Public Use
  Company Number: 1000009468

PATIENT
  Age: 35 Year
  Sex: Male

DRUGS (12)
  1. ESCITALOPRAM [Suspect]
     Dosage: 10 MG (10 MG, 1 IN 1 D), ORAL
     Route: 048
     Dates: start: 20090820, end: 20090820
  2. SEROQUEL XR [Suspect]
     Dosage: 300 MG (300 MG, 1 IN 1 D), ORAL; 100 MG (100 MG 1 IN 1 D) ORAL
     Route: 048
     Dates: start: 20090604, end: 20090608
  3. SEROQUEL XR [Suspect]
     Dosage: 300 MG (300 MG, 1 IN 1 D), ORAL; 100 MG (100 MG 1 IN 1 D) ORAL
     Route: 048
     Dates: start: 20090609, end: 20090612
  4. RISPERDAL [Suspect]
     Dosage: SEE IMAGE
     Route: 048
     Dates: start: 20090612, end: 20090614
  5. RISPERDAL [Suspect]
     Dosage: SEE IMAGE
     Route: 048
     Dates: start: 20090615, end: 20090702
  6. RISPERDAL [Suspect]
     Dosage: SEE IMAGE
     Route: 048
     Dates: start: 20090703, end: 20090707
  7. RISPERDAL [Suspect]
     Dosage: SEE IMAGE
     Route: 048
     Dates: start: 20090708, end: 20090711
  8. RISPERDAL [Suspect]
     Dosage: SEE IMAGE
     Route: 048
     Dates: start: 20090712, end: 20090812
  9. HALDOL [Suspect]
     Dosage: 4 MG (4 MG, 1 IN 1 D), ORAL; 8 MG  (8 MG, 1 IN 1 D), ORAL; 10 MG (10 MG, 1 IN 1 D), ORAL
     Route: 048
     Dates: start: 20090807, end: 20090812
  10. HALDOL [Suspect]
     Dosage: 4 MG (4 MG, 1 IN 1 D), ORAL; 8 MG  (8 MG, 1 IN 1 D), ORAL; 10 MG (10 MG, 1 IN 1 D), ORAL
     Route: 048
     Dates: start: 20090813, end: 20090817
  11. HALDOL [Suspect]
     Dosage: 4 MG (4 MG, 1 IN 1 D), ORAL; 8 MG  (8 MG, 1 IN 1 D), ORAL; 10 MG (10 MG, 1 IN 1 D), ORAL
     Route: 048
     Dates: start: 20090818, end: 20090819
  12. HALDOL [Suspect]
     Dosage: 4 MG (4 MG, 1 IN 1 D), ORAL; 8 MG  (8 MG, 1 IN 1 D), ORAL; 10 MG (10 MG, 1 IN 1 D), ORAL
     Route: 048
     Dates: start: 20090820, end: 20090820

REACTIONS (2)
  - COMPLETED SUICIDE [None]
  - DEPRESSION [None]
